FAERS Safety Report 8398445-0 (Version None)
Quarter: 2012Q2

REPORT INFORMATION
  Report Type: 
  Country: None (occurrence: None)
  Receive Date: 20120531
  Receipt Date: 20120524
  Transmission Date: 20120825
  Serious: Yes (Other)
  Sender: FDA-Public Use
  Company Number: US-BAYER-2012-014723

PATIENT
  Age: 37 Year
  Sex: Female
  Weight: 104.31 kg

DRUGS (4)
  1. SYNTHROID [Concomitant]
     Indication: THYROID DISORDER
     Dosage: 0.125 MG/1 EVERY DAY
     Route: 048
     Dates: start: 19980101
  2. TRIAMTERENE AND HYDROCHLOROTHIAZIDE [Concomitant]
     Indication: FLUID RETENTION
     Dosage: 37.5MG-25 MG/DAILY
     Route: 048
     Dates: start: 20080101
  3. YAZ [Suspect]
     Indication: CONTRACEPTION
     Dosage: UNK
     Dates: start: 20090602, end: 20091112
  4. PHENTERMINE [Concomitant]
     Indication: WEIGHT DECREASED
     Dosage: 30 MG, UNK
     Dates: start: 20040101, end: 20091001

REACTIONS (5)
  - THROMBOSIS [None]
  - ANXIETY [None]
  - ANHEDONIA [None]
  - PAIN [None]
  - FEAR OF DISEASE [None]
